FAERS Safety Report 7237461-9 (Version None)
Quarter: 2011Q1

REPORT INFORMATION
  Report Type: 
  Country: None (occurrence: None)
  Receive Date: 20110112
  Receipt Date: 20101227
  Transmission Date: 20110831
  Serious: Yes (Other)
  Sender: FDA-Public Use
  Company Number: JPI-P-013314

PATIENT
  Age: 49 Year
  Sex: Female
  Weight: 78.9259 kg

DRUGS (24)
  1. BUTORPHANOL TARTRATE [Concomitant]
  2. XYREM [Suspect]
     Indication: SLEEP DISORDER
     Dosage: SEE IMAGE ORAL
     Route: 048
     Dates: start: 20100801, end: 20100801
  3. XYREM [Suspect]
     Indication: INSOMNIA
     Dosage: SEE IMAGE ORAL
     Route: 048
     Dates: start: 20100801, end: 20100801
  4. XYREM [Suspect]
     Indication: RAPID EYE MOVEMENTS SLEEP ABNORMAL
     Dosage: SEE IMAGE ORAL
     Route: 048
     Dates: start: 20100801, end: 20100801
  5. XYREM [Suspect]
     Indication: SLEEP DISORDER
     Dosage: SEE IMAGE ORAL
     Route: 048
     Dates: start: 20100101
  6. XYREM [Suspect]
     Indication: INSOMNIA
     Dosage: SEE IMAGE ORAL
     Route: 048
     Dates: start: 20100101
  7. XYREM [Suspect]
     Indication: RAPID EYE MOVEMENTS SLEEP ABNORMAL
     Dosage: SEE IMAGE ORAL
     Route: 048
     Dates: start: 20100101
  8. XYREM [Suspect]
     Indication: SLEEP DISORDER
     Dosage: SEE IMAGE ORAL
     Route: 048
     Dates: start: 20100801, end: 20100801
  9. XYREM [Suspect]
     Indication: INSOMNIA
     Dosage: SEE IMAGE ORAL
     Route: 048
     Dates: start: 20100801, end: 20100801
  10. XYREM [Suspect]
     Indication: RAPID EYE MOVEMENTS SLEEP ABNORMAL
     Dosage: SEE IMAGE ORAL
     Route: 048
     Dates: start: 20100801, end: 20100801
  11. XYREM [Suspect]
     Indication: SLEEP DISORDER
     Dosage: SEE IMAGE ORAL
     Route: 048
     Dates: start: 20100831, end: 20100921
  12. XYREM [Suspect]
     Indication: INSOMNIA
     Dosage: SEE IMAGE ORAL
     Route: 048
     Dates: start: 20100831, end: 20100921
  13. XYREM [Suspect]
     Indication: RAPID EYE MOVEMENTS SLEEP ABNORMAL
     Dosage: SEE IMAGE ORAL
     Route: 048
     Dates: start: 20100831, end: 20100921
  14. XYREM [Suspect]
     Indication: SLEEP DISORDER
     Dosage: SEE IMAGE ORAL
     Route: 048
     Dates: start: 20100808, end: 20100801
  15. XYREM [Suspect]
     Indication: INSOMNIA
     Dosage: SEE IMAGE ORAL
     Route: 048
     Dates: start: 20100808, end: 20100801
  16. XYREM [Suspect]
     Indication: RAPID EYE MOVEMENTS SLEEP ABNORMAL
     Dosage: SEE IMAGE ORAL
     Route: 048
     Dates: start: 20100808, end: 20100801
  17. XYREM [Suspect]
     Indication: SLEEP DISORDER
     Dosage: SEE IMAGE ORAL
     Route: 048
     Dates: start: 20100922, end: 20100101
  18. XYREM [Suspect]
     Indication: INSOMNIA
     Dosage: SEE IMAGE ORAL
     Route: 048
     Dates: start: 20100922, end: 20100101
  19. XYREM [Suspect]
     Indication: RAPID EYE MOVEMENTS SLEEP ABNORMAL
     Dosage: SEE IMAGE ORAL
     Route: 048
     Dates: start: 20100922, end: 20100101
  20. MAGNESIUM [Concomitant]
  21. MORPHINE SULFATE [Suspect]
     Indication: PAIN
     Dosage: 15 MG, 20 MG
     Dates: start: 20101001
  22. MORPHINE SULFATE [Suspect]
     Indication: PAIN
     Dosage: 15 MG, 20 MG
     Dates: start: 20101101
  23. ALPRAZOLAM [Concomitant]
  24. DANTROLENE SODIUM [Concomitant]

REACTIONS (11)
  - INSOMNIA [None]
  - SINUSITIS [None]
  - FALL [None]
  - UPPER LIMB FRACTURE [None]
  - NAUSEA [None]
  - VOMITING [None]
  - HEADACHE [None]
  - INITIAL INSOMNIA [None]
  - EAR INFECTION [None]
  - HYPERSOMNIA [None]
  - ANXIETY [None]
